FAERS Safety Report 20296573 (Version 4)
Quarter: 2022Q3

REPORT INFORMATION
  Report Type: Report from Study
  Country: US (occurrence: US)
  Receive Date: 20220105
  Receipt Date: 20220705
  Transmission Date: 20221026
  Serious: Yes (Disabling, Other)
  Sender: FDA-Public Use
  Company Number: US-NOVARTISTESTPH-NVSC2022US000907

PATIENT
  Age: 66 Year
  Sex: Female

DRUGS (3)
  1. MAYZENT [Suspect]
     Active Substance: SIPONIMOD
     Indication: Secondary progressive multiple sclerosis
     Dosage: 1 MG, QD
     Route: 048
     Dates: start: 20211122
  2. MAYZENT [Suspect]
     Active Substance: SIPONIMOD
     Dosage: 0.25 MG (STRENGTH 0.25MG)
     Route: 048
  3. MAYZENT [Suspect]
     Active Substance: SIPONIMOD
     Dosage: 0.25 MG (STRENGTH 0.25MG)
     Route: 048

REACTIONS (5)
  - Fall [Unknown]
  - Multiple sclerosis relapse [Unknown]
  - Liver disorder [Unknown]
  - White blood cell count increased [Unknown]
  - Feeling abnormal [Not Recovered/Not Resolved]

NARRATIVE: CASE EVENT DATE: 20220615
